FAERS Safety Report 12805449 (Version 1)
Quarter: 2016Q4

REPORT INFORMATION
  Report Type: Spontaneous
  Country: AU (occurrence: AU)
  Receive Date: 20161004
  Receipt Date: 20161004
  Transmission Date: 20170207
  Serious: Yes (Hospitalization)
  Sender: FDA-Public Use
  Company Number: AU-AMGEN-AUSSP2016106798

PATIENT
  Age: 63 Year
  Sex: Female

DRUGS (1)
  1. ENBREL [Suspect]
     Active Substance: ETANERCEPT
     Indication: RHEUMATOID ARTHRITIS
     Dosage: 50 MG, WEEKLY FRIDAY NIGHT
     Route: 065
     Dates: start: 2014

REACTIONS (4)
  - Sinus disorder [Not Recovered/Not Resolved]
  - Malaise [Recovered/Resolved]
  - Nasal disorder [Not Recovered/Not Resolved]
  - Stress [Not Recovered/Not Resolved]
